FAERS Safety Report 18099035 (Version 1)
Quarter: 2020Q3

REPORT INFORMATION
  Report Type: Spontaneous
  Country: SE (occurrence: SE)
  Receive Date: 20200731
  Receipt Date: 20200731
  Transmission Date: 20201103
  Serious: Yes (Disabling)
  Sender: FDA-Public Use
  Company Number: SE-LEO PHARMA-330733

PATIENT
  Age: 38 Year
  Sex: Male
  Weight: 107 kg

DRUGS (1)
  1. XAMIOL? [Suspect]
     Active Substance: BETAMETHASONE DIPROPIONATE\CALCIPOTRIENE HYDRATE
     Indication: PSORIASIS
     Dates: start: 20200208, end: 20200706

REACTIONS (7)
  - Psoriasis [Recovered/Resolved with Sequelae]
  - Swelling [Recovered/Resolved with Sequelae]
  - Myalgia [Recovered/Resolved with Sequelae]
  - Swelling face [Recovered/Resolved with Sequelae]
  - Pyrexia [Recovered/Resolved with Sequelae]
  - Food craving [Recovered/Resolved with Sequelae]
  - Pain of skin [Recovered/Resolved with Sequelae]

NARRATIVE: CASE EVENT DATE: 20200209
